FAERS Safety Report 8571024 (Version 2)
Quarter: 2012Q4

REPORT INFORMATION
  Report Type: 
  Country: US (occurrence: US)
  Receive Date: 20120521
  Receipt Date: 20121019
  Transmission Date: 20130627
  Serious: No
  Sender: FDA-Public Use
  Company Number: US-US-EMD SERONO, INC.-7132749

PATIENT
  Age: 72 None
  Sex: Male

DRUGS (1)
  1. REBIF [Suspect]
     Indication: PRODUCT USED FOR UNKNOWN INDICATION
     Route: 058
     Dates: start: 20120412

REACTIONS (3)
  - Urinary tract infection [Unknown]
  - Lip swelling [Not Recovered/Not Resolved]
  - Skin reaction [Recovered/Resolved]
